FAERS Safety Report 7903113-2 (Version None)
Quarter: 2011Q4

REPORT INFORMATION
  Report Type: 
  Country: None (occurrence: None)
  Receive Date: 20111109
  Receipt Date: 20111103
  Transmission Date: 20120403
  Serious: Yes (Other)
  Sender: FDA-Public Use
  Company Number: DE-BRISTOL-MYERS SQUIBB COMPANY-16215204

PATIENT

DRUGS (2)
  1. CLOMIPRAMINE HCL [Suspect]
     Indication: SCHIZOPHRENIA
  2. ABILIFY [Suspect]
     Indication: SCHIZOPHRENIA

REACTIONS (2)
  - SEROTONIN SYNDROME [None]
  - HALLUCINATION, AUDITORY [None]
